FAERS Safety Report 6014362-5 (Version None)
Quarter: 2008Q4

REPORT INFORMATION
  Report Type: 
  Country: None (occurrence: None)
  Receive Date: 20081219
  Receipt Date: 20080508
  Transmission Date: 20090506
  Serious: No
  Sender: FDA-Public Use
  Company Number: A0726905A

PATIENT
  Age: 70 Year
  Sex: Male

DRUGS (6)
  1. AVODART [Suspect]
     Indication: BENIGN PROSTATIC HYPERPLASIA
     Dosage: 1CAP PER DAY
     Route: 048
  2. VIAGRA [Concomitant]
  3. PAXIL [Concomitant]
  4. TOPROL-XL [Concomitant]
  5. KLONOPIN [Concomitant]
  6. NORVASC [Concomitant]

REACTIONS (3)
  - LOSS OF LIBIDO [None]
  - NIPPLE PAIN [None]
  - PENILE SIZE REDUCED [None]
